FAERS Safety Report 7243970-9 (Version None)
Quarter: 2011Q1

REPORT INFORMATION
  Report Type: 
  Country: None (occurrence: None)
  Receive Date: 20110125
  Receipt Date: 20110112
  Transmission Date: 20110831
  Serious: Yes (Hospitalization)
  Sender: FDA-Public Use
  Company Number: JP-AMGEN-JPNCT2011001527

PATIENT
  Age: 69 Year
  Sex: Male
  Weight: 59 kg

DRUGS (14)
  1. KOBALNON [Concomitant]
     Dosage: UNK
     Route: 048
  2. AMLODIPINE [Concomitant]
     Dosage: UNK
     Route: 048
  3. GASCON [Concomitant]
     Dosage: UNK
     Route: 048
  4. CORTICOSTEROIDS [Concomitant]
     Indication: PROPHYLAXIS
     Dosage: UNK
     Route: 065
  5. LOBU [Concomitant]
     Dosage: UNK
     Route: 048
  6. METHYCOBAL [Concomitant]
     Dosage: UNK
     Route: 048
  7. LANSOPRAZOLE [Concomitant]
     Dosage: UNK
     Route: 048
  8. ANTIHISTAMINES [Concomitant]
     Indication: PROPHYLAXIS
     Dosage: UNK
     Route: 065
  9. LAC B N [Concomitant]
     Dosage: UNK
     Route: 048
  10. CETUXIMAB [Suspect]
     Indication: COLORECTAL CANCER
     Dosage: UNK
     Route: 041
     Dates: start: 20091201, end: 20100801
  11. PURSENNID [Concomitant]
     Dosage: UNK
     Route: 048
  12. PANITUMUMAB [Suspect]
     Indication: COLORECTAL CANCER
     Dosage: 6 MG/KG, Q2WK
     Route: 041
     Dates: start: 20100824, end: 20100921
  13. PANITUMUMAB [Suspect]
     Dosage: 6 MG/KG, Q2WK
     Route: 041
     Dates: start: 20101102, end: 20101207
  14. VOWLO [Concomitant]
     Dosage: UNK
     Route: 049

REACTIONS (7)
  - LOWER GASTROINTESTINAL HAEMORRHAGE [None]
  - DERMATITIS ACNEIFORM [None]
  - BLOOD CALCIUM DECREASED [None]
  - PARONYCHIA [None]
  - MYOCARDIAL INFARCTION [None]
  - PRURITUS [None]
  - BLOOD MAGNESIUM DECREASED [None]
